FAERS Safety Report 6146942-0 (Version None)
Quarter: 2009Q2

REPORT INFORMATION
  Report Type: 
  Country: None (occurrence: None)
  Receive Date: 20090407
  Receipt Date: 20090401
  Transmission Date: 20091009
  Serious: Yes (Life-Threatening, Hospitalization)
  Sender: FDA-Public Use
  Company Number: GB-PFIZER INC-2007107603

PATIENT

DRUGS (2)
  1. DOXAZOSIN MESYLATE [Suspect]
     Dosage: 40 MG, 1X/DAY
     Route: 048
  2. DILTIAZEM [Suspect]
     Dosage: ONCE
     Dates: start: 20070101, end: 20070101

REACTIONS (3)
  - CARDIOTOXICITY [None]
  - HYPOTENSION [None]
  - INTENTIONAL OVERDOSE [None]
